FAERS Safety Report 17207617 (Version 1)
Quarter: 2019Q4

REPORT INFORMATION
  Report Type: Spontaneous
  Country: FR (occurrence: FR)
  Receive Date: 20191227
  Receipt Date: 20191227
  Transmission Date: 20200122
  Serious: Yes (Other)
  Sender: FDA-Public Use
  Company Number: FR-PFIZER INC-2019551833

PATIENT
  Age: 48 Year
  Sex: Male

DRUGS (2)
  1. XYLOCAINE WITH EPINEPHRINE [Suspect]
     Active Substance: EPINEPHRINE BITARTRATE\LIDOCAINE HYDROCHLORIDE
     Indication: DENTAL LOCAL ANAESTHESIA
     Dosage: 1 DF, SINGLE
     Route: 050
     Dates: start: 1988, end: 1988
  2. FELDENE [Suspect]
     Active Substance: PIROXICAM
     Indication: PAIN
     Dosage: 2 DF, SINGLE
     Route: 048
     Dates: start: 1988, end: 1988

REACTIONS (2)
  - Asphyxia [Recovered/Resolved]
  - Dyspnoea [Recovered/Resolved]

NARRATIVE: CASE EVENT DATE: 1988
